FAERS Safety Report 6723635-X (Version None)
Quarter: 2010Q2

REPORT INFORMATION
  Report Type: 
  Country: None (occurrence: None)
  Receive Date: 20100513
  Receipt Date: 20100430
  Transmission Date: 20101027
  Serious: Yes (Hospitalization, Other)
  Sender: FDA-Public Use
  Company Number: PHHY2009IE54262

PATIENT
  Sex: Male
  Weight: 55 kg

DRUGS (7)
  1. RASILEZ [Suspect]
     Indication: HYPERTENSION
     Dosage: 150 MG, QD
     Route: 048
     Dates: start: 20090604
  2. SERTRALINE HYDROCHLORIDE [Concomitant]
     Indication: ANXIETY
     Dosage: 50 MG, QD
  3. AMLODIPINE BESYLATE [Concomitant]
     Indication: HYPERTENSION
     Dosage: 5 MG, QD
  4. LOW CENTYL K [Concomitant]
     Indication: HYPERTENSION
     Dosage: UNK
  5. NEXIUM [Concomitant]
     Indication: GASTRITIS
     Dosage: 40 MG, QD
  6. SERC [Concomitant]
     Dosage: 8 MG, BID
  7. AMLIST [Concomitant]
     Dosage: UNK

REACTIONS (9)
  - BALANCE DISORDER [None]
  - CEREBRAL INFARCTION [None]
  - DIZZINESS [None]
  - FALL [None]
  - HEAD INJURY [None]
  - MALAISE [None]
  - NUCLEAR MAGNETIC RESONANCE IMAGING BRAIN ABNORMAL [None]
  - SINUSITIS [None]
  - SKIN INJURY [None]
